FAERS Safety Report 6825493-1 (Version None)
Quarter: 2010Q3

REPORT INFORMATION
  Report Type: 
  Country: None (occurrence: None)
  Receive Date: 20100708
  Receipt Date: 20070313
  Transmission Date: 20110219
  Serious: No
  Sender: FDA-Public Use
  Company Number: US-PFIZER INC-2006145196

PATIENT
  Sex: Female
  Weight: 86.18 kg

DRUGS (6)
  1. CHANTIX [Suspect]
     Indication: EX-TOBACCO USER
     Dates: start: 20061104, end: 20061101
  2. PROZAC [Interacting]
     Indication: DEPRESSION
  3. REMERON [Interacting]
     Indication: DEPRESSION
  4. LOVASTATIN [Concomitant]
  5. ZETIA [Concomitant]
  6. ATIVAN [Concomitant]

REACTIONS (2)
  - DEPRESSION [None]
  - DRUG INTERACTION [None]
